FAERS Safety Report 17035343 (Version 1)
Quarter: 2019Q4

REPORT INFORMATION
  Report Type: Spontaneous
  Country: RS (occurrence: RS)
  Receive Date: 20191115
  Receipt Date: 20191115
  Transmission Date: 20200122
  Serious: Yes (Hospitalization)
  Sender: FDA-Public Use
  Company Number: RS-TEVA-2010R0705324

PATIENT
  Age: 33 Year
  Sex: Female

DRUGS (1)
  1. VERAPAMIL 80 MG [Suspect]
     Active Substance: VERAPAMIL HYDROCHLORIDE
     Indication: SUICIDAL IDEATION

REACTIONS (6)
  - Respiratory arrest [Unknown]
  - Atrioventricular block complete [Unknown]
  - Hypotension [Unknown]
  - Overdose [Unknown]
  - Suicide attempt [Recovered/Resolved]
  - Cardiogenic shock [Unknown]
